FAERS Safety Report 8161011-6 (Version None)
Quarter: 2012Q1

REPORT INFORMATION
  Report Type: 
  Country: None (occurrence: None)
  Receive Date: 20120224
  Receipt Date: 20120216
  Transmission Date: 20120608
  Serious: Yes (Other)
  Sender: FDA-Public Use
  Company Number: IT-SP-E2012-01172

PATIENT
  Sex: Female

DRUGS (1)
  1. TUBERSOL [Suspect]
     Indication: TUBERCULIN TEST
     Route: 023
     Dates: start: 20120131, end: 20120131

REACTIONS (3)
  - PARAESTHESIA ORAL [None]
  - DYSPNOEA [None]
  - SYNCOPE [None]
